FAERS Safety Report 25950085 (Version 1)
Quarter: 2025Q4

REPORT INFORMATION
  Report Type: Spontaneous
  Country: BR (occurrence: BR)
  Receive Date: 20251022
  Receipt Date: 20251022
  Transmission Date: 20260118
  Serious: Yes (Other)
  Sender: MERCK SHARP & DOHME LLC
  Company Number: BR-009507513-2341868

PATIENT
  Sex: Male

DRUGS (2)
  1. PEMBROLIZUMAB [Suspect]
     Active Substance: PEMBROLIZUMAB
     Indication: Malignant melanoma
  2. DURVALUMAB [Suspect]
     Active Substance: DURVALUMAB

REACTIONS (10)
  - Squamous cell carcinoma [Unknown]
  - Skin lesion [Unknown]
  - Lichenoid keratosis [Unknown]
  - Skin hyperplasia [Unknown]
  - Acanthosis [Unknown]
  - Lichenoid keratosis [Unknown]
  - Dermatitis psoriasiform [Unknown]
  - Lichen planus [Unknown]
  - Sunburn [Unknown]
  - Psoriasis [Unknown]
